FAERS Safety Report 9188923 (Version 6)
Quarter: 2016Q2

REPORT INFORMATION
  Report Type: Spontaneous
  Country: AR (occurrence: AR)
  Receive Date: 20130326
  Receipt Date: 20160513
  Transmission Date: 20160815
  Serious: Yes (Hospitalization, Other)
  Sender: FDA-Public Use
  Company Number: AR-AMGEN-ARGSP2012031081

PATIENT
  Age: 56 Year
  Sex: Female

DRUGS (5)
  1. ENBREL [Suspect]
     Active Substance: ETANERCEPT
     Indication: RHEUMATOID ARTHRITIS
     Dosage: 25MG, 2X/WEEK
     Route: 058
     Dates: start: 20040910, end: 2013
  2. LOSARTAN. [Concomitant]
     Active Substance: LOSARTAN
     Dosage: UNK
  3. METHOTREXATE [Concomitant]
     Active Substance: METHOTREXATE
     Dosage: UNK
  4. DICLOFENAC [Concomitant]
     Active Substance: DICLOFENAC
     Dosage: UNK
  5. ENBREL [Suspect]
     Active Substance: ETANERCEPT
     Dosage: 25MG, 2X/WEEK
     Route: 058

REACTIONS (8)
  - Pain [Not Recovered/Not Resolved]
  - Device related infection [Recovered/Resolved]
  - Arthropathy [Recovering/Resolving]
  - Dysstasia [Not Recovered/Not Resolved]
  - Osteomyelitis [Recovering/Resolving]
  - Device failure [Not Recovered/Not Resolved]
  - Inflammation [Recovering/Resolving]
  - Osteoarthritis [Recovered/Resolved]

NARRATIVE: CASE EVENT DATE: 2006
